FAERS Safety Report 9512994 (Version 2)
Quarter: 2013Q4

REPORT INFORMATION
  Report Type: Spontaneous
  Country: US (occurrence: US)
  Receive Date: 20130910
  Receipt Date: 20131104
  Transmission Date: 20140711
  Serious: Yes (Other)
  Sender: FDA-Public Use
  Company Number: US-PFIZER INC-2013259937

PATIENT
  Age: 67 Year
  Sex: Female
  Weight: 45.35 kg

DRUGS (5)
  1. GEODON [Suspect]
     Indication: BIPOLAR II DISORDER
     Dosage: UNK
  2. GEODON [Suspect]
     Indication: ANXIETY
     Dosage: 20 MG, 2X/DAY
  3. METHOTREXATE [Concomitant]
     Indication: RHEUMATOID ARTHRITIS
     Dosage: UNK, WEEKLY
  4. REMICADE [Concomitant]
     Indication: RHEUMATOID ARTHRITIS
     Dosage: UNK, YEARLY
  5. RECLAST [Concomitant]
     Indication: RHEUMATOID ARTHRITIS
     Dosage: UNK

REACTIONS (7)
  - Rheumatoid arthritis [Unknown]
  - Drug dependence [Unknown]
  - Osteoporosis [Unknown]
  - Amnesia [Unknown]
  - Mental disorder [Unknown]
  - Anxiety [Unknown]
  - Nervousness [Unknown]
